FAERS Safety Report 9733632 (Version 5)
Quarter: 2014Q3

REPORT INFORMATION
  Report Type: Report from Study
  Country: FR (occurrence: FR)
  Receive Date: 20131205
  Receipt Date: 20140701
  Transmission Date: 20150326
  Serious: Yes (Hospitalization)
  Sender: FDA-Public Use
  Company Number: FR-B.I. PHARMACEUTICALS,INC./RIDGEFIELD-2013-FF-00630FF

PATIENT
  Age: 37 Year
  Sex: Female
  Weight: 57 kg

DRUGS (11)
  1. ACTISKENAN [Concomitant]
     Active Substance: MORPHINE SULFATE
     Indication: BONE PAIN
     Route: 048
     Dates: start: 20130213, end: 20130307
  2. TOPALGIC [Concomitant]
     Active Substance: TRAMADOL
     Indication: CHEST PAIN
     Route: 048
     Dates: start: 20121219
  3. CERAZETTE [Concomitant]
     Active Substance: DESOGESTREL
     Indication: CONTRACEPTION
     Dosage: 0.075 MG
     Route: 048
  4. LYRICA [Suspect]
     Active Substance: PREGABALIN
     Indication: CHEST PAIN
     Dosage: 150 MG
     Route: 048
     Dates: start: 20121127
  5. TOPALGIC LP [Concomitant]
     Active Substance: TRAMADOL
     Indication: CHEST PAIN
     Dosage: 200 MG
     Route: 048
     Dates: start: 20121219
  6. BIBF 1120+BIBW 2992 [Suspect]
     Active Substance: INVESTIGATIONAL PRODUCT
     Dosage: 30 MG
     Route: 048
     Dates: start: 20130214, end: 20130226
  7. BIBF 1120+BIBW 2992 [Suspect]
     Active Substance: INVESTIGATIONAL PRODUCT
     Dosage: NINTEDANIB: FORMULATION-CAPSULE; DOSE-200MG DAILY; AFATINIB: FORMULATION-TABLET; DOSE-20MG DAILY
     Route: 048
     Dates: start: 20130308, end: 20130322
  8. BIBF 1120+BIBW 2992 [Suspect]
     Active Substance: INVESTIGATIONAL PRODUCT
     Indication: NON-SMALL CELL LUNG CANCER
     Dosage: 300 MG
     Route: 048
     Dates: start: 20130213, end: 20130226
  9. LEVONOX [Concomitant]
     Active Substance: LEVOFLOXACIN
     Indication: THROMBOSIS PROPHYLAXIS
     Dosage: 0.4 ML
     Route: 058
     Dates: start: 20130227, end: 20130228
  10. CERAZETTE [Concomitant]
     Active Substance: DESOGESTREL
     Dosage: 1 ANZ
     Route: 048
  11. SKENAN [Concomitant]
     Active Substance: MORPHINE SULFATE
     Indication: BONE PAIN
     Dosage: 20 MG
     Route: 048
     Dates: start: 20130213, end: 20130307

REACTIONS (19)
  - Dysphagia [Recovered/Resolved]
  - Diarrhoea [Recovered/Resolved]
  - Asthenia [Recovered/Resolved]
  - Mucosal inflammation [Recovered/Resolved]
  - Bone pain [Not Recovered/Not Resolved]
  - Dehydration [Recovered/Resolved]
  - Anaemia [Recovered/Resolved]
  - Abdominal pain upper [Recovered/Resolved]
  - Hepatocellular injury [Recovered/Resolved]
  - Dysphonia [Not Recovered/Not Resolved]
  - Renal failure [Recovered/Resolved]
  - Hyperlipasaemia [Recovered/Resolved]
  - Metabolic acidosis [Recovered/Resolved]
  - Hypokalaemia [Recovered/Resolved]
  - Nausea [Recovered/Resolved]
  - General physical health deterioration [Recovered/Resolved]
  - Decreased appetite [Recovered/Resolved]
  - Rash [Not Recovered/Not Resolved]
  - Lung infection [Not Recovered/Not Resolved]

NARRATIVE: CASE EVENT DATE: 20130214
